FAERS Safety Report 11050720 (Version 1)
Quarter: 2015Q2

REPORT INFORMATION
  Report Type: Spontaneous
  Country: US (occurrence: US)
  Receive Date: 20150421
  Receipt Date: 20150421
  Transmission Date: 20150821
  Serious: No
  Sender: FDA-Public Use
  Company Number: US-BIOGENIDEC-2015BI040940

PATIENT
  Sex: Female

DRUGS (1)
  1. AVONEX [Suspect]
     Active Substance: INTERFERON BETA-1A
     Indication: MULTIPLE SCLEROSIS
     Route: 030
     Dates: start: 20130110, end: 20130603

REACTIONS (4)
  - Dysstasia [Not Recovered/Not Resolved]
  - Memory impairment [Not Recovered/Not Resolved]
  - Disability [Not Recovered/Not Resolved]
  - Asthenia [Not Recovered/Not Resolved]
